FAERS Safety Report 7342775-8 (Version None)
Quarter: 2011Q1

REPORT INFORMATION
  Report Type: 
  Country: None (occurrence: None)
  Receive Date: 20110310
  Receipt Date: 20110223
  Transmission Date: 20110831
  Serious: Yes (Hospitalization, Other)
  Sender: FDA-Public Use
  Company Number: US-BAYER-201031772NA

PATIENT
  Sex: Female
  Weight: 86 kg

DRUGS (13)
  1. NASONEX [Concomitant]
     Dosage: UNK UNK, PRN
  2. YASMIN [Suspect]
     Dosage: UNK
     Dates: start: 20070101, end: 20071101
  3. COMBIVENT [Concomitant]
     Dosage: UNK, PRN
  4. ALLEGRA-D [FEXOFENADINE HYDROCHLORIDE,PSEUDOEPHEDRINE] [Concomitant]
     Dosage: UNK UNK, PRN
  5. AMITRIPTYLINE [Concomitant]
     Dosage: UNK UNK, HS
  6. BENTYL [Concomitant]
     Indication: PAIN
  7. YASMIN [Suspect]
     Indication: PRODUCT USED FOR UNKNOWN INDICATION
     Dosage: UNK UNK, UNK
     Route: 065
     Dates: start: 20041201, end: 20070101
  8. NSAID'S [Concomitant]
  9. RESPIRATORY SYSTEM [Concomitant]
  10. BENTYL [Concomitant]
     Indication: MUSCLE SPASMS
  11. ALBUTEROL [Concomitant]
     Dosage: UNK UNK, PRN
  12. POTASSIUM [Concomitant]
  13. PREVACID [Concomitant]
     Dosage: 30 MG, UNK

REACTIONS (9)
  - FATIGUE [None]
  - NAUSEA [None]
  - ABDOMINAL PAIN [None]
  - BILIARY DYSKINESIA [None]
  - DIARRHOEA [None]
  - VOMITING [None]
  - CHOLECYSTITIS CHRONIC [None]
  - ABDOMINAL PAIN UPPER [None]
  - HEADACHE [None]
